FAERS Safety Report 7612780-2 (Version None)
Quarter: 2011Q3

REPORT INFORMATION
  Report Type: 
  Country: None (occurrence: None)
  Receive Date: 20110708
  Receipt Date: 20110724
  Transmission Date: 20111222
  Serious: Yes (Disabling)
  Sender: FDA-Public Use
  Company Number: 2011AP001321

PATIENT
  Age: 56 Year
  Sex: Female

DRUGS (7)
  1. PROCYCLIDINE (PROCYCLIDINE) [Concomitant]
  2. RISPRIDONE [Concomitant]
  3. VALPROATE SODIUM [Concomitant]
  4. LITHIUM CARBONATE [Concomitant]
  5. VALPROATE SODIUM [Concomitant]
  6. SERTRALINE HYDROCHLORIDE [Suspect]
     Indication: DEPRESSED MOOD
     Dosage: 50 MG;TAB;PO;
     Route: 048
     Dates: start: 20110528, end: 20110531
  7. LEVOTHYROXINE SODIUM [Concomitant]

REACTIONS (4)
  - SEDATION [None]
  - HYPOTONIA [None]
  - DYSPHAGIA [None]
  - MOBILITY DECREASED [None]
